FAERS Safety Report 8436529-9 (Version None)
Quarter: 2012Q2

REPORT INFORMATION
  Report Type: 
  Country: None (occurrence: None)
  Receive Date: 20120614
  Receipt Date: 20120607
  Transmission Date: 20120825
  Serious: No
  Sender: FDA-Public Use
  Company Number: JP-GLAXOSMITHKLINE-B0803918A

PATIENT
  Sex: Male

DRUGS (3)
  1. PROMACTA [Suspect]
     Dosage: 75MG PER DAY
     Route: 048
     Dates: start: 20120101
  2. PROMACTA [Suspect]
     Dosage: 25MG PER DAY
     Route: 048
  3. IMURAN [Suspect]
     Route: 048
     Dates: end: 20120301

REACTIONS (1)
  - LIVER DISORDER [None]
